FAERS Safety Report 5027900-6 (Version None)
Quarter: 2006Q2

REPORT INFORMATION
  Report Type: 
  Country: None (occurrence: None)
  Receive Date: 20060616
  Receipt Date: 20060605
  Transmission Date: 20061013
  Serious: No
  Sender: FDA-Public Use
  Company Number: US-MERCK-0606USA00751

PATIENT
  Age: 48 Year
  Sex: Female
  Weight: 91 kg

DRUGS (5)
  1. HYZAAR [Suspect]
     Indication: HYPERTENSION
     Route: 048
     Dates: start: 20060119, end: 20060301
  2. HYZAAR [Suspect]
     Route: 048
     Dates: start: 20060301, end: 20060530
  3. TOPROL-XL [Concomitant]
     Indication: BLOOD PRESSURE INCREASED
     Route: 048
     Dates: start: 20040101
  4. ZOCOR [Concomitant]
     Indication: BLOOD PRESSURE INCREASED
     Route: 048
     Dates: start: 20010101
  5. ECOTRIN [Concomitant]
     Indication: ANTICOAGULANT THERAPY
     Route: 048
     Dates: start: 20040101

REACTIONS (3)
  - ARRHYTHMIA [None]
  - HYPOKALAEMIA [None]
  - PALPITATIONS [None]
